FAERS Safety Report 7830820-2 (Version None)
Quarter: 2011Q4

REPORT INFORMATION
  Report Type: 
  Country: None (occurrence: None)
  Receive Date: 20111021
  Receipt Date: 20110928
  Transmission Date: 20120403
  Serious: Yes (Hospitalization)
  Sender: FDA-Public Use
  Company Number: US-GLAXOSMITHKLINE-B0752847A

PATIENT
  Age: 56 Year
  Sex: Female

DRUGS (2)
  1. LETAIRIS [Suspect]
     Indication: PULMONARY HYPERTENSION
     Route: 048
     Dates: start: 20110629, end: 20110830
  2. FLOLAN [Suspect]

REACTIONS (4)
  - RIGHT VENTRICULAR FAILURE [None]
  - DYSPNOEA [None]
  - DIZZINESS [None]
  - SWELLING [None]
